FAERS Safety Report 15592719 (Version 5)
Quarter: 2019Q1

REPORT INFORMATION
  Report Type: Report from Study
  Country: US (occurrence: US)
  Receive Date: 20181107
  Receipt Date: 20190328
  Transmission Date: 20190417
  Serious: Yes (Hospitalization, Other)
  Sender: FDA-Public Use
  Company Number: US-MALLINCKRODT-T201802450

PATIENT
  Age: 64 Year
  Sex: Male
  Weight: 87 kg

DRUGS (11)
  1. REPOSITORY CORTICOTROPIN INJECTION [Suspect]
     Active Substance: CORTICOTROPIN
     Indication: GLOMERULONEPHRITIS MEMBRANOUS
     Dosage: 80 UNITS/1 ML, 2 TIMES PER WEEK, TUESDAY/FRIDAY
     Route: 058
     Dates: start: 20180601, end: 2018
  2. LASIX [Suspect]
     Active Substance: FUROSEMIDE
     Indication: FLUID RETENTION
     Dosage: 80 MG, BID
     Route: 065
  3. REPOSITORY CORTICOTROPIN INJECTION [Suspect]
     Active Substance: CORTICOTROPIN
     Indication: PROTEINURIA
     Dosage: 80 UNITS/1 ML, 2 TIMES PER WEEK, WEDNESDAY/SATURDAY
     Route: 058
     Dates: start: 2018, end: 2018
  4. REPOSITORY CORTICOTROPIN INJECTION [Suspect]
     Active Substance: CORTICOTROPIN
     Dosage: 80 UNITS/1 ML, 2 TIMES PER WEEK, TUESDAY/FRIDAY
     Route: 058
     Dates: start: 2018
  5. REPOSITORY CORTICOTROPIN INJECTION [Suspect]
     Active Substance: CORTICOTROPIN
     Dosage: 80 UNITS/1 ML, 2 TIMES PER WEEK, TUESDAY/FRIDAY
     Route: 058
     Dates: start: 2018
  6. FLU [Concomitant]
     Active Substance: INFLUENZA VIRUS VACCINE
     Indication: PRODUCT USED FOR UNKNOWN INDICATION
     Dosage: UNKNOWN
     Route: 065
  7. LABETALOL [Concomitant]
     Active Substance: LABETALOL\LABETALOL HYDROCHLORIDE
     Indication: BLOOD PRESSURE ABNORMAL
     Dosage: UNKNOWN
     Route: 065
  8. AMLODIPINE [Concomitant]
     Active Substance: AMLODIPINE BESYLATE
     Indication: BLOOD PRESSURE ABNORMAL
     Dosage: UNKNOWN
     Route: 065
  9. REPOSITORY CORTICOTROPIN INJECTION [Suspect]
     Active Substance: CORTICOTROPIN
     Indication: NEPHROTIC SYNDROME
     Dosage: 80 UNITS/1 ML, 2 TIMES PER WEEK, TUESDAY/FRIDAY
     Route: 058
     Dates: start: 2018, end: 2018
  10. HYDRALAZINE [Suspect]
     Active Substance: HYDRALAZINE HYDROCHLORIDE
     Indication: PRODUCT USED FOR UNKNOWN INDICATION
     Dosage: UNKNOWN
     Route: 065
  11. LASIX [Suspect]
     Active Substance: FUROSEMIDE
     Dosage: 160 MG, QD
     Route: 065

REACTIONS (30)
  - Dyspnoea [Not Recovered/Not Resolved]
  - Blister [Recovering/Resolving]
  - Blood potassium decreased [Not Recovered/Not Resolved]
  - Blood pressure increased [Not Recovered/Not Resolved]
  - Blood potassium abnormal [Not Recovered/Not Resolved]
  - Cardiac failure congestive [Not Recovered/Not Resolved]
  - Contusion [Recovering/Resolving]
  - Rash [Not Recovered/Not Resolved]
  - Agitation [Recovering/Resolving]
  - Weight increased [Recovering/Resolving]
  - Proteinuria [Recovering/Resolving]
  - Dysgeusia [Recovering/Resolving]
  - Asthenia [Recovering/Resolving]
  - Somnolence [Not Recovered/Not Resolved]
  - Decreased appetite [Recovering/Resolving]
  - Scrotal swelling [Not Recovered/Not Resolved]
  - Skin discolouration [Not Recovered/Not Resolved]
  - Feeling abnormal [Not Recovered/Not Resolved]
  - Mood swings [Not Recovered/Not Resolved]
  - Appetite disorder [Not Recovered/Not Resolved]
  - Headache [Not Recovered/Not Resolved]
  - Fluid retention [Recovered/Resolved]
  - Generalised oedema [Not Recovered/Not Resolved]
  - Neck pain [Recovering/Resolving]
  - Blood creatinine increased [Recovering/Resolving]
  - Psychomotor hyperactivity [Not Recovered/Not Resolved]
  - Drug ineffective [Not Recovered/Not Resolved]
  - Pulmonary congestion [Recovering/Resolving]
  - Blood pressure abnormal [Not Recovered/Not Resolved]
  - Insomnia [Unknown]

NARRATIVE: CASE EVENT DATE: 2018
